FAERS Safety Report 8978324 (Version 1)
Quarter: 2012Q4

REPORT INFORMATION
  Report Type: Report from Study
  Country: CA (occurrence: CA)
  Receive Date: 20121221
  Receipt Date: 20121221
  Transmission Date: 20130627
  Serious: Yes (Hospitalization)
  Sender: FDA-Public Use
  Company Number: CA-JNJFOC-20121205829

PATIENT
  Age: 67 Year
  Sex: Male
  Weight: 75.75 kg

DRUGS (1)
  1. REMICADE [Suspect]
     Indication: CROHN^S DISEASE
     Dosage: 4 vials
     Route: 042
     Dates: start: 20121101

REACTIONS (1)
  - Cholecystectomy [Unknown]
